FAERS Safety Report 7307281-5 (Version None)
Quarter: 2011Q1

REPORT INFORMATION
  Report Type: 
  Country: None (occurrence: None)
  Receive Date: 20110120
  Receipt Date: 20100317
  Transmission Date: 20110831
  Serious: Yes (Hospitalization)
  Sender: FDA-Public Use
  Company Number: WAES 1003USA02748

PATIENT
  Age: 58 Year
  Sex: Female

DRUGS (6)
  1. LASIX [Concomitant]
  2. ASPIRIN [Concomitant]
  3. FLUOXETINE [Concomitant]
  4. FATTY ACIDS [Concomitant]
  5. INVANZ [Suspect]
     Indication: ABSCESS LIMB
     Dosage: 1 GM/DAILY/IV
     Route: 042
     Dates: start: 20100101, end: 20100101
  6. CRESTOR [Concomitant]

REACTIONS (1)
  - HALLUCINATION [None]
